FAERS Safety Report 4445898-6 (Version None)
Quarter: 2004Q3

REPORT INFORMATION
  Report Type: 
  Country: None (occurrence: None)
  Receive Date: 20040907
  Receipt Date: 20040824
  Transmission Date: 20050211
  Serious: Yes (Hospitalization)
  Sender: FDA-Public Use
  Company Number: 2004-BP-07415AU

PATIENT
  Sex: Female

DRUGS (5)
  1. MOBIC [Suspect]
     Indication: OSTEOARTHRITIS
     Dosage: 7.5 MG (7.5 MG, 7.5 MG ONCE DAILY)  PO
     Route: 048
  2. MODURETIC (AMILORIDE HYDROCHLORIDE AND HYDROCHLOROTHIAZIDE) (TA) [Concomitant]
  3. OROXINE (LEVOTHYROXINE SODIUM) [Concomitant]
  4. PARACETAMOL [Concomitant]
  5. PANADEINE FORTE (PANADEINE CO) [Concomitant]

REACTIONS (7)
  - BLOOD CREATININE INCREASED [None]
  - CARDIAC FAILURE CONGESTIVE [None]
  - DEHYDRATION [None]
  - GASTRIC ULCER [None]
  - HYPERTENSION [None]
  - HYPOTHYROIDISM [None]
  - MELAENA [None]
